FAERS Safety Report 10750502 (Version 2)
Quarter: 2015Q4

REPORT INFORMATION
  Report Type: Spontaneous
  Country: NL (occurrence: NL)
  Receive Date: 20150130
  Receipt Date: 20151230
  Transmission Date: 20160304
  Serious: Yes (Hospitalization, Other)
  Sender: FDA-Public Use
  Company Number: NL-ASTRAZENECA-2015SE07511

PATIENT
  Age: 30944 Day
  Sex: Male

DRUGS (4)
  1. ZOLADEX [Suspect]
     Active Substance: GOSERELIN ACETATE
     Indication: PROSTATE CANCER
     Route: 058
     Dates: start: 20130904
  2. SINTROM [Concomitant]
     Active Substance: ACENOCOUMAROL
  3. ZYTIGA [Concomitant]
     Active Substance: ABIRATERONE ACETATE
  4. MORPHINE [Concomitant]
     Active Substance: MORPHINE
     Dosage: 4 GRAMME AND12,5 MG

REACTIONS (3)
  - Malignant neoplasm progression [Unknown]
  - Atrial fibrillation [Unknown]
  - Metastatic pain [Unknown]
